FAERS Safety Report 15055217 (Version 1)
Quarter: 2018Q2

REPORT INFORMATION
  Report Type: Spontaneous
  Country: US (occurrence: US)
  Receive Date: 20180622
  Receipt Date: 20180622
  Transmission Date: 20180711
  Serious: No
  Sender: FDA-Public Use
  Company Number: US-009507513-1806USA007516

PATIENT
  Age: 47 Year
  Sex: Female

DRUGS (5)
  1. NEXPLANON [Suspect]
     Active Substance: ETONOGESTREL
     Indication: CONTRACEPTION
     Dosage: 3 YEAR IMPLANT IN RIGHT ARM
     Route: 059
     Dates: start: 20180511
  2. ZYRTEC [Concomitant]
     Active Substance: CETIRIZINE HYDROCHLORIDE
  3. NEXPLANON [Suspect]
     Active Substance: ETONOGESTREL
     Indication: DYSMENORRHOEA
  4. SINGULAIR [Concomitant]
     Active Substance: MONTELUKAST SODIUM
  5. INSULIN [Concomitant]
     Active Substance: INSULIN NOS

REACTIONS (2)
  - Implant site pruritus [Recovered/Resolved]
  - Product use in unapproved indication [Unknown]

NARRATIVE: CASE EVENT DATE: 2018
